FAERS Safety Report 19503305 (Version 1)
Quarter: 2021Q3

REPORT INFORMATION
  Report Type: Spontaneous
  Country: NL (occurrence: FR)
  Receive Date: 20210707
  Receipt Date: 20210707
  Transmission Date: 20211014
  Serious: Yes (Hospitalization)
  Sender: FDA-Public Use
  Company Number: FR-FRESENIUS KABI-FK202106651

PATIENT
  Age: 38 Year
  Sex: Female

DRUGS (3)
  1. SUFENTANIL CITRATE. [Suspect]
     Active Substance: SUFENTANIL CITRATE
     Indication: OOCYTE HARVEST
     Dosage: 5 MCG, BATCH/LOT NO.: REPORTED AS {UNKNOWN}
     Route: 041
     Dates: start: 20210505, end: 20210505
  2. PROPOFOL (MANUFACTURER UNKNOWN) [Suspect]
     Active Substance: PROPOFOL
     Indication: OOCYTE HARVEST
     Dosage: 267 MG, BATCH/LOT NO.: REPORTED AS {UNKNOWN}
     Route: 041
     Dates: start: 20210505, end: 20210505
  3. CEFOXITIN [Suspect]
     Active Substance: CEFOXITIN SODIUM
     Indication: OOCYTE HARVEST
     Dosage: 2 G, BATCH/LOT NO.: REPORTED AS {UNKNOWN}
     Route: 041
     Dates: start: 20210505, end: 20210505

REACTIONS (1)
  - Anaphylactic reaction [Recovered/Resolved]

NARRATIVE: CASE EVENT DATE: 20210505
